FAERS Safety Report 8785029 (Version 1)
Quarter: 2012Q4

REPORT INFORMATION
  Report Type: 
  Country: US (occurrence: US)
  Receive Date: 20120914
  Receipt Date: 20120914
  Transmission Date: 20130627
  Serious: No
  Sender: FDA-Public Use
  Company Number: US-ASTRAZENECA-2012SE64815

PATIENT
  Age: 65 Year
  Sex: Female
  Weight: 85.7 kg

DRUGS (3)
  1. TOPROL XL [Suspect]
     Indication: HEART RATE INCREASED
     Route: 048
  2. METFORMIN [Concomitant]
  3. GLIMIPERIDE [Concomitant]

REACTIONS (7)
  - Muscle spasms [Recovered/Resolved]
  - Hypertension [Unknown]
  - Heart rate increased [Unknown]
  - Sensory disturbance [Unknown]
  - Chest discomfort [Unknown]
  - Off label use [Unknown]
  - Intentional drug misuse [Unknown]
